FAERS Safety Report 8309438-3 (Version None)
Quarter: 2012Q2

REPORT INFORMATION
  Report Type: 
  Country: None (occurrence: None)
  Receive Date: 20120424
  Receipt Date: 20120424
  Transmission Date: 20120825
  Serious: No
  Sender: FDA-Public Use
  Company Number: None

PATIENT
  Age: 70 Year
  Sex: Female

DRUGS (8)
  1. LASIX [Concomitant]
  2. FAMOTIDINE [Concomitant]
  3. LETAIRIS [Suspect]
     Indication: PULMONARY HYPERTENSION
     Dosage: 5MG QD ORALLY
     Route: 048
  4. KLOR-CON [Concomitant]
  5. LOSARTAN POTASSIUM [Concomitant]
  6. ONDANSETRON [Concomitant]
  7. GABAPENTIN [Concomitant]
  8. COUMADIN [Concomitant]

REACTIONS (4)
  - GASTROINTESTINAL DISORDER [None]
  - NAUSEA [None]
  - RASH [None]
  - PRURITUS [None]
